FAERS Safety Report 15793011 (Version 1)
Quarter: 2019Q1

REPORT INFORMATION
  Report Type: Report from Study
  Country: IN (occurrence: IN)
  Receive Date: 20190107
  Receipt Date: 20190107
  Transmission Date: 20190417
  Serious: Yes (Other)
  Sender: FDA-Public Use
  Company Number: IN-ROCHE-2238003

PATIENT

DRUGS (5)
  1. RITUXIMAB. [Suspect]
     Active Substance: RITUXIMAB
     Indication: LUPUS NEPHRITIS
     Route: 065
  2. AZATHIOPRINE. [Suspect]
     Active Substance: AZATHIOPRINE
     Indication: LUPUS NEPHRITIS
     Route: 065
  3. TACROLIMUS. [Suspect]
     Active Substance: TACROLIMUS
     Indication: LUPUS NEPHRITIS
     Route: 065
  4. MYCOPHENOLATE MOFETIL. [Suspect]
     Active Substance: MYCOPHENOLATE MOFETIL
     Indication: LUPUS NEPHRITIS
     Route: 065
  5. CYCLOPHOSPHAMIDE. [Suspect]
     Active Substance: CYCLOPHOSPHAMIDE
     Indication: LUPUS NEPHRITIS
     Route: 065

REACTIONS (16)
  - Herpes simplex [Unknown]
  - Transaminases increased [Unknown]
  - Tuberculosis [Unknown]
  - Infection [Unknown]
  - Herpes zoster [Unknown]
  - Vomiting [Unknown]
  - Pneumonia [Unknown]
  - Cerebral toxoplasmosis [Unknown]
  - Upper respiratory tract infection [Unknown]
  - Gastrointestinal disorder [Unknown]
  - Diarrhoea [Unknown]
  - Duodenal ulcer [Unknown]
  - Cellulitis [Unknown]
  - Seizure [Unknown]
  - Neutropenia [Unknown]
  - Urinary tract infection [Unknown]
